FAERS Safety Report 7340495-7 (Version None)
Quarter: 2011Q1

REPORT INFORMATION
  Report Type: 
  Country: None (occurrence: None)
  Receive Date: 20110228
  Receipt Date: 20110211
  Transmission Date: 20110831
  Serious: Yes (Other)
  Sender: FDA-Public Use
  Company Number: 2011MA001462

PATIENT
  Age: 37 Year
  Sex: Male

DRUGS (3)
  1. PEGABALIN (LYRICA) [Suspect]
     Dosage: 300 MG, TID;
  2. TRAMADOL [Concomitant]
  3. TRAMADOL HYDROCHLORIDE [Suspect]

REACTIONS (2)
  - VENTRICULAR EXTRASYSTOLES [None]
  - ARRHYTHMIA [None]
